FAERS Safety Report 10217386 (Version 1)
Quarter: 2014Q2

REPORT INFORMATION
  Report Type: Spontaneous
  Country: US (occurrence: US)
  Receive Date: 20140604
  Receipt Date: 20140604
  Transmission Date: 20141212
  Serious: Yes (Other)
  Sender: FDA-Public Use
  Company Number: US-TEVA-485002USA

PATIENT
  Sex: Female

DRUGS (2)
  1. COPAXONE 40MG [Suspect]
     Indication: MULTIPLE SCLEROSIS
     Dates: start: 20031001
  2. COPAXONE 40MG [Suspect]
     Dates: start: 2014

REACTIONS (4)
  - Type 2 diabetes mellitus [Unknown]
  - Multiple sclerosis relapse [Recovered/Resolved]
  - Fibromyalgia [Unknown]
  - Hypoaesthesia [Recovered/Resolved]
